FAERS Safety Report 16445085 (Version 1)
Quarter: 2019Q2

REPORT INFORMATION
  Report Type: Report from Study
  Country: None (occurrence: IT)
  Receive Date: 20190618
  Receipt Date: 20190618
  Transmission Date: 20190711
  Serious: Yes (Other)
  Sender: FDA-Public Use
  Company Number: IT-ABBVIE-19K-083-2823967-00

PATIENT
  Age: 63 Year
  Sex: Female
  Weight: 78 kg

DRUGS (1)
  1. HUMIRA [Suspect]
     Active Substance: ADALIMUMAB
     Indication: PRODUCT USED FOR UNKNOWN INDICATION
     Route: 058
     Dates: start: 20170901, end: 20190613

REACTIONS (2)
  - Ulcerative keratitis [Recovered/Resolved with Sequelae]
  - Herpes ophthalmic [Recovered/Resolved with Sequelae]

NARRATIVE: CASE EVENT DATE: 20190516
